FAERS Safety Report 4456790-5 (Version None)
Quarter: 2004Q3

REPORT INFORMATION
  Report Type: 
  Country: None (occurrence: None)
  Receive Date: 20040913
  Receipt Date: 20040913
  Transmission Date: 20050211
  Serious: Yes (Hospitalization)
  Sender: FDA-Public Use
  Company Number: None

PATIENT
  Age: 68 Year
  Sex: Female
  Weight: 102.0593 kg

DRUGS (8)
  1. BACTRACIN ZINC OINTMENT USP [Suspect]
     Dosage: TOPICAL APPLICATION
     Route: 061
     Dates: start: 20040828
  2. SILVADENE [Concomitant]
  3. PREVACID [Concomitant]
  4. LANOXIN [Concomitant]
  5. LEXAPRO [Concomitant]
  6. VICADIN [Concomitant]
  7. PRN [Concomitant]
  8. VITAMIN C [Concomitant]

REACTIONS (1)
  - ANAPHYLACTIC REACTION [None]
